FAERS Safety Report 4595667-1 (Version None)
Quarter: 2005Q1

REPORT INFORMATION
  Report Type: 
  Country: None (occurrence: None)
  Receive Date: 20050302
  Receipt Date: 20050201
  Transmission Date: 20050727
  Serious: Yes (Hospitalization)
  Sender: FDA-Public Use
  Company Number: PHEH2005US01532

PATIENT
  Age: 75 Year
  Sex: Male

DRUGS (18)
  1. ZELNORM [Suspect]
     Indication: CONSTIPATION
     Dosage: 6 MG, BID
     Route: 048
     Dates: start: 20050130, end: 20050201
  2. CAPTOPRIL [Concomitant]
     Dosage: 50 MG, TID
  3. UNASYN [Concomitant]
  4. VICODIN [Concomitant]
  5. LASIX [Concomitant]
  6. METFORMIN HCL [Concomitant]
     Dosage: 500 MG, TID
     Route: 048
  7. GLYBURIDE [Concomitant]
     Dosage: 5 MG QAM AND 1.25 MG QHS
  8. LOPRESSOR [Concomitant]
     Dosage: 50 MG, BID
     Route: 048
  9. INSULIN [Concomitant]
     Dates: start: 20050126
  10. PROTONIX [Concomitant]
     Dosage: 40 MG, QD
     Route: 042
  11. GENTAMYCIN-MP [Concomitant]
     Dosage: 120 MG, ONCE/SINGLE
     Route: 042
  12. FENTANYL [Concomitant]
  13. ASPIRIN [Concomitant]
     Dosage: 81 MG, QD
     Route: 048
  14. VERSED [Concomitant]
     Route: 042
  15. AMPICILLIN [Concomitant]
     Dosage: 3 G, Q6H
     Route: 042
  16. ZOCOR [Concomitant]
     Dosage: 20 MG, QHS
  17. NORVASC [Concomitant]
     Dosage: 5 MG, QD
  18. HYDROCHLOROTHIAZIDE [Concomitant]
     Dosage: 12.5 MG, QD
     Route: 048

REACTIONS (35)
  - ABDOMINAL DISTENSION [None]
  - ABDOMINAL PAIN [None]
  - ABDOMINAL TENDERNESS [None]
  - ASCITES [None]
  - ATELECTASIS [None]
  - BLOOD CREATININE INCREASED [None]
  - BLOOD PH DECREASED [None]
  - BLOOD UREA INCREASED [None]
  - BODY TEMPERATURE INCREASED [None]
  - BOWEL SOUNDS ABNORMAL [None]
  - BREATH SOUNDS DECREASED [None]
  - CHEST X-RAY ABNORMAL [None]
  - COLECTOMY [None]
  - CONSTIPATION [None]
  - FLATULENCE [None]
  - GASTROINTESTINAL OBSTRUCTION [None]
  - HEART RATE INCREASED [None]
  - HYPOTENSION [None]
  - ILEUS PARALYTIC [None]
  - INTESTINAL ISCHAEMIA [None]
  - LARGE INTESTINAL OBSTRUCTION [None]
  - LARGE INTESTINE PERFORATION [None]
  - LUNG INFILTRATION [None]
  - METABOLIC ACIDOSIS [None]
  - NAUSEA [None]
  - OCULAR ICTERUS [None]
  - OXYGEN SATURATION DECREASED [None]
  - PO2 INCREASED [None]
  - PYREXIA [None]
  - RENAL FAILURE ACUTE [None]
  - RESPIRATORY FAILURE [None]
  - RESPIRATORY RATE INCREASED [None]
  - SEPSIS [None]
  - VOMITING [None]
  - WHITE BLOOD CELL COUNT INCREASED [None]
